FAERS Safety Report 23099347 (Version 1)
Quarter: 2023Q4

REPORT INFORMATION
  Report Type: Spontaneous
  Country: SI (occurrence: SI)
  Receive Date: 20231024
  Receipt Date: 20231024
  Transmission Date: 20240110
  Serious: Yes (Disabling, Other)
  Sender: FDA-Public Use
  Company Number: None

PATIENT
  Age: 34 Year
  Sex: Female
  Weight: 69 kg

DRUGS (1)
  1. EUTHYROX [Suspect]
     Active Substance: LEVOTHYROXINE SODIUM
     Indication: Thyroidectomy
     Dosage: STRENGTH: 50 MCG DOSAGE: 3 TABLET IN THE MORNINGS
     Route: 048
     Dates: start: 20210829, end: 20211130

REACTIONS (12)
  - Loss of personal independence in daily activities [Recovering/Resolving]
  - Gait disturbance [Recovering/Resolving]
  - Bone pain [Recovering/Resolving]
  - Mobility decreased [Recovering/Resolving]
  - Abdominal pain upper [Recovering/Resolving]
  - Irritability [Recovering/Resolving]
  - Chills [Recovering/Resolving]
  - Depression [Recovering/Resolving]
  - Decreased appetite [Recovering/Resolving]
  - Alopecia [Recovering/Resolving]
  - Nausea [Recovering/Resolving]
  - Weight decreased [Recovering/Resolving]

NARRATIVE: CASE EVENT DATE: 20210829
